FAERS Safety Report 14460641 (Version 1)
Quarter: 2018Q1

REPORT INFORMATION
  Report Type: Spontaneous
  Country: US (occurrence: US)
  Receive Date: 20180130
  Receipt Date: 20180130
  Transmission Date: 20180509
  Serious: Yes (Other)
  Sender: FDA-Public Use
  Company Number: None

PATIENT
  Age: 62 Year
  Weight: 87.75 kg

DRUGS (5)
  1. FISH OIL [Concomitant]
     Active Substance: FISH OIL
  2. LISINOPRIL. [Concomitant]
     Active Substance: LISINOPRIL
  3. BABY ASPIRIN [Concomitant]
     Active Substance: ASPIRIN
  4. WELCHOL [Suspect]
     Active Substance: COLESEVELAM HYDROCHLORIDE
     Indication: BLOOD CHOLESTEROL
     Dosage: ?          QUANTITY:3 TABLET(S);?
     Route: 048
     Dates: start: 20171121, end: 20180117
  5. ZETIA [Concomitant]
     Active Substance: EZETIMIBE

REACTIONS (2)
  - Vitamin B complex deficiency [None]
  - Muscle rigidity [None]

NARRATIVE: CASE EVENT DATE: 20180117
